FAERS Safety Report 19090520 (Version 1)
Quarter: 2021Q2

REPORT INFORMATION
  Report Type: Spontaneous
  Country: GB (occurrence: GB)
  Receive Date: 20210405
  Receipt Date: 20210405
  Transmission Date: 20210717
  Serious: Yes (Hospitalization, Other)
  Sender: FDA-Public Use
  Company Number: GB-SA-2021SA101823

PATIENT
  Sex: Female

DRUGS (2)
  1. APROVEL [Suspect]
     Active Substance: IRBESARTAN
     Dosage: 75 MG, Q12H
  2. APROVEL [Suspect]
     Active Substance: IRBESARTAN
     Dosage: 150 MG, QD

REACTIONS (2)
  - Pulmonary haemorrhage [Unknown]
  - Product availability issue [Unknown]
